FAERS Safety Report 5507704-8 (Version None)
Quarter: 2007Q4

REPORT INFORMATION
  Report Type: 
  Country: None (occurrence: None)
  Receive Date: 20071106
  Receipt Date: 20071102
  Transmission Date: 20080405
  Serious: Yes (Hospitalization)
  Sender: FDA-Public Use
  Company Number: B0493951A

PATIENT
  Age: 31 Year
  Sex: Female

DRUGS (1)
  1. CLAMOXYL [Suspect]
     Dosage: 1UNIT SINGLE DOSE
     Route: 048
     Dates: start: 20010101

REACTIONS (3)
  - DYSPNOEA [None]
  - FACE OEDEMA [None]
  - URTICARIA [None]
